FAERS Safety Report 25059834 (Version 4)
Quarter: 2025Q3

REPORT INFORMATION
  Report Type: Spontaneous
  Country: US (occurrence: US)
  Receive Date: 20250310
  Receipt Date: 20250812
  Transmission Date: 20251021
  Serious: Yes (Hospitalization, Other)
  Sender: SANOFI AVENTIS
  Company Number: US-SA-2025SA068478

PATIENT
  Age: 67 Year
  Sex: Female

DRUGS (1)
  1. DUPIXENT [Suspect]
     Active Substance: DUPILUMAB
     Indication: Dermatitis atopic
     Dosage: 300 MG, QOW
     Route: 058
     Dates: start: 202410

REACTIONS (7)
  - Cataract [Unknown]
  - Arthralgia [Unknown]
  - Gait disturbance [Unknown]
  - Mobility decreased [Unknown]
  - Knee arthroplasty [Unknown]
  - Abdominal pain upper [Unknown]
  - Nasopharyngitis [Unknown]
